FAERS Safety Report 5256836-0 (Version None)
Quarter: 2007Q1

REPORT INFORMATION
  Report Type: 
  Country: None (occurrence: None)
  Receive Date: 20070306
  Receipt Date: 20070228
  Transmission Date: 20070707
  Serious: Yes (Death, Other)
  Sender: FDA-Public Use
  Company Number: JP-PFIZER INC-2007016216

PATIENT
  Age: 70 Year
  Sex: Male

DRUGS (5)
  1. METHYLPREDNISOLONE [Suspect]
     Indication: RESPIRATORY FAILURE
     Dosage: DAILY DOSE:1GRAM
     Dates: start: 20060519, end: 20060101
  2. PREDNISOLONE [Concomitant]
  3. ALL OTHER THERAPEUTIC PRODUCTS [Concomitant]
  4. FLUCONAZOLE [Concomitant]
  5. CO-TRIMOXAZOLE [Concomitant]

REACTIONS (2)
  - SEPTIC SHOCK [None]
  - STRONGYLOIDIASIS [None]
